FAERS Safety Report 11245775 (Version 2)
Quarter: 2015Q3

REPORT INFORMATION
  Report Type: Spontaneous
  Country: JP (occurrence: JP)
  Receive Date: 20150707
  Receipt Date: 20150721
  Transmission Date: 20151125
  Serious: Yes (Life-Threatening, Other)
  Sender: FDA-Public Use
  Company Number: JP-AMEDRA PHARMACEUTICALS LLC-2015AMD00129

PATIENT
  Age: 42 Year
  Sex: Female

DRUGS (1)
  1. EPINEPHRINE (UNKNOWN MANUFACTURER) [Suspect]
     Active Substance: EPINEPHRINE
     Indication: LOCAL ANAESTHESIA
     Dosage: 0.17 MG, ONCE
     Route: 023

REACTIONS (8)
  - Left ventricular dysfunction [Recovered/Resolved]
  - Electrocardiogram ST segment depression [Recovered/Resolved]
  - Cardiomegaly [Recovered/Resolved]
  - Hypotension [Recovered/Resolved]
  - Blood pressure increased [None]
  - Stress cardiomyopathy [Recovered/Resolved]
  - Extrasystoles [None]
  - Tachycardia [None]

NARRATIVE: CASE EVENT DATE: 201206
